FAERS Safety Report 5494343-0 (Version None)
Quarter: 2007Q4

REPORT INFORMATION
  Report Type: 
  Country: None (occurrence: None)
  Receive Date: 20071024
  Receipt Date: 20071016
  Transmission Date: 20080405
  Serious: Yes (Hospitalization)
  Sender: FDA-Public Use
  Company Number: AU-NOVOPROD-268494

PATIENT

DRUGS (3)
  1. NOVORAPID PENFILL [Suspect]
     Dates: start: 20050101
  2. PROTAPHANE PENFILL [Suspect]
     Dates: start: 20050101
  3. DIABEX [Concomitant]

REACTIONS (3)
  - CHEST PAIN [None]
  - CHOKING [None]
  - DYSPNOEA [None]
